FAERS Safety Report 17874933 (Version 1)
Quarter: 2020Q2

REPORT INFORMATION
  Report Type: Spontaneous
  Country: US (occurrence: US)
  Receive Date: 20200606
  Receipt Date: 20200606
  Transmission Date: 20200714
  Serious: Yes (Other)
  Sender: FDA-Public Use
  Company Number: None

PATIENT
  Age: 30 Year
  Sex: Female
  Weight: 48.15 kg

DRUGS (9)
  1. WOMAN^S MULTIVITAMINS [Concomitant]
  2. KETOTIFIN FUMURATE [Concomitant]
  3. PLAQUENIL [Concomitant]
     Active Substance: HYDROXYCHLOROQUINE SULFATE
  4. MONTEKULAST [Concomitant]
     Active Substance: MONTELUKAST SODIUM
  5. CROMOLYN [Concomitant]
     Active Substance: CROMOLYN
  6. FAMOTIDINE. [Concomitant]
     Active Substance: FAMOTIDINE
  7. FISH OIL [Concomitant]
     Active Substance: FISH OIL
  8. THE GOOD PATCH HANGOVER [Suspect]
     Active Substance: CANNABIDIOL\HERBALS\VITAMINS
     Indication: HANGOVER
     Dosage: ?          QUANTITY:1 PATCH(ES);?
     Route: 062
  9. CETIRIZINE [Concomitant]
     Active Substance: CETIRIZINE HYDROCHLORIDE

REACTIONS (7)
  - Throat irritation [None]
  - Dizziness [None]
  - Chest pain [None]
  - Angioedema [None]
  - Urticaria [None]
  - Dyspnoea [None]
  - Dermatitis contact [None]

NARRATIVE: CASE EVENT DATE: 20200606
